FAERS Safety Report 9714303 (Version 2)
Quarter: 2013Q4

REPORT INFORMATION
  Report Type: Spontaneous
  Country: US (occurrence: US)
  Receive Date: 20131126
  Receipt Date: 20131126
  Transmission Date: 20140711
  Serious: No
  Sender: FDA-Public Use
  Company Number: US-GALDERMA-US-GDP-12415219

PATIENT
  Sex: Female
  Weight: 86 kg

DRUGS (10)
  1. CAPEX [Suspect]
     Indication: DANDRUFF
     Route: 061
     Dates: start: 2010
  2. CLOBETASOL SHAMPOO (SANDOZ) [Suspect]
     Indication: DANDRUFF
     Route: 061
     Dates: start: 201208, end: 201209
  3. CLOBEX SPRAY [Suspect]
     Indication: DANDRUFF
     Route: 061
     Dates: start: 201209, end: 201209
  4. BENICAR [Concomitant]
     Indication: HYPERTENSION
     Route: 048
  5. SIMVASTATIN [Concomitant]
  6. SINGULAIR [Concomitant]
     Indication: ASTHMA
     Route: 048
  7. ADVAIR [Concomitant]
     Indication: ASTHMA
  8. CLARINEX [Concomitant]
     Indication: SEASONAL ALLERGY
  9. CLARITIN [Concomitant]
     Route: 048
  10. FLUOCINOLONE ACETONIDE OIL [Concomitant]
     Indication: PSORIASIS
     Route: 001

REACTIONS (9)
  - Hair texture abnormal [Not Recovered/Not Resolved]
  - Seborrhoea [Unknown]
  - Condition aggravated [Unknown]
  - Skin irritation [Not Recovered/Not Resolved]
  - Erythema [Not Recovered/Not Resolved]
  - Drug ineffective [Not Recovered/Not Resolved]
  - Incorrect drug administration duration [Not Recovered/Not Resolved]
  - Pruritus [Not Recovered/Not Resolved]
  - Off label use [Not Recovered/Not Resolved]
